FAERS Safety Report 8267641-5 (Version None)
Quarter: 2012Q2

REPORT INFORMATION
  Report Type: 
  Country: None (occurrence: None)
  Receive Date: 20120409
  Receipt Date: 20120330
  Transmission Date: 20120825
  Serious: Yes (Hospitalization)
  Sender: FDA-Public Use
  Company Number: PHHY2012CA025114

PATIENT
  Sex: Female

DRUGS (7)
  1. COUMADIN [Interacting]
     Dosage: 5 MG DAILY
     Route: 048
  2. VITAMIN B6 [Concomitant]
     Dosage: 100 MG DAILY
     Route: 048
  3. FOLIC ACID [Concomitant]
     Dosage: 5 MG DAILY
     Route: 048
  4. EXJADE [Suspect]
     Indication: MYELODYSPLASTIC SYNDROME
     Dosage: 1000 MG, UNK
     Route: 048
     Dates: start: 20110622
  5. ACTONEL [Concomitant]
     Dosage: 35 MG WEEKLY
  6. LASIX [Concomitant]
     Dosage: 40 MG DAILY
     Route: 048
  7. OCTAPLEX [Concomitant]

REACTIONS (11)
  - CARDIOVASCULAR DECONDITIONING [None]
  - INTERNATIONAL NORMALISED RATIO INCREASED [None]
  - HAEMOGLOBIN DECREASED [None]
  - GAIT DISTURBANCE [None]
  - DRUG INTERACTION [None]
  - MALAISE [None]
  - CARDIAC FAILURE CONGESTIVE [None]
  - URINARY TRACT INFECTION [None]
  - GASTROINTESTINAL HAEMORRHAGE [None]
  - ASTHENIA [None]
  - GASTROINTESTINAL ANGIODYSPLASIA [None]
